FAERS Safety Report 8286983-0 (Version None)
Quarter: 2012Q2

REPORT INFORMATION
  Report Type: 
  Country: None (occurrence: None)
  Receive Date: 20120416
  Receipt Date: 20120406
  Transmission Date: 20120825
  Serious: Yes (Hospitalization)
  Sender: FDA-Public Use
  Company Number: US-BAYER-2012-033921

PATIENT
  Age: 35 Year
  Sex: Female

DRUGS (7)
  1. BENZACLIN [Concomitant]
     Dosage: 1.2-2.5%
     Dates: start: 20100127
  2. TIZANIDINE HCL [Concomitant]
     Dosage: 4 MG, UNK
     Dates: start: 20100225
  3. YAZ [Suspect]
     Indication: ACNE
     Dosage: UNK
  4. YASMIN [Suspect]
     Dosage: UNK
  5. DROSPIRENONE AND ETHINYL ESTRADIOL [Suspect]
     Dosage: UNK
  6. CIPROFLOXACIN HCL [Concomitant]
     Indication: PROPHYLAXIS URINARY TRACT INFECTION
     Dosage: 500 MG AS NEEDED
     Route: 048
  7. NICOTINAMIDE [Concomitant]
     Dosage: 750 MG, UNK
     Dates: start: 20100120

REACTIONS (1)
  - PULMONARY EMBOLISM [None]
